FAERS Safety Report 7404132-5 (Version None)
Quarter: 2011Q1

REPORT INFORMATION
  Report Type: 
  Country: None (occurrence: None)
  Receive Date: 20110322
  Receipt Date: 20110309
  Transmission Date: 20110831
  Serious: Yes (Death, Hospitalization, Other)
  Sender: FDA-Public Use
  Company Number: 2010PROUSA00035

PATIENT
  Age: 73 Year
  Sex: Male
  Weight: 84.8 kg

DRUGS (4)
  1. PROVENGE [Suspect]
     Indication: PROSTATE CANCER METASTATIC
     Dosage: 250 ML, SINGLE, INTRAVENOUS
     Route: 042
     Dates: start: 20100628, end: 20100628
  2. VALIUM [Suspect]
  3. PROVENGE [Suspect]
     Dosage: 250 ML, SINGLE, INTRAVENOUS
     Route: 042
     Dates: start: 20100730, end: 20100730
  4. PROVENGE [Suspect]
     Dosage: 250 ML, SINGLE, INTRAVENOUS
     Route: 042
     Dates: start: 20100716, end: 20100716

REACTIONS (13)
  - METASTASES TO BONE [None]
  - AMMONIA INCREASED [None]
  - UPPER LIMB FRACTURE [None]
  - FATIGUE [None]
  - METASTASES TO CENTRAL NERVOUS SYSTEM [None]
  - HYPOTENSION [None]
  - TOXICITY TO VARIOUS AGENTS [None]
  - HYPERSOMNIA [None]
  - CONFUSIONAL STATE [None]
  - CONCUSSION [None]
  - AMNESIA [None]
  - FALL [None]
  - LACERATION [None]
